FAERS Safety Report 9006670 (Version 1)
Quarter: 2013Q1

REPORT INFORMATION
  Report Type: Spontaneous
  Country: US (occurrence: US)
  Receive Date: 20130110
  Receipt Date: 20130110
  Transmission Date: 20140127
  Serious: Yes (Death)
  Sender: FDA-Public Use
  Company Number: US-PFIZER INC-2013006958

PATIENT
  Age: 31 Year
  Sex: Male

DRUGS (7)
  1. OXYCODONE HYDROCHLORIDE [Suspect]
     Dosage: UNK
     Route: 048
  2. LIDOCAINE HCL [Suspect]
     Dosage: UNK
     Route: 048
  3. NAPROXEN SODIUM [Suspect]
     Dosage: UNK
     Route: 048
  4. HYDROXYZINE PAMOATE [Suspect]
     Dosage: UNK
     Route: 048
  5. AMPHETAMINE [Suspect]
     Dosage: UNK
     Route: 048
  6. MEPROBAMATE [Suspect]
     Dosage: UNK
     Route: 048
  7. TOBACCO [Suspect]
     Dosage: UNK
     Route: 048

REACTIONS (3)
  - Drug abuse [Fatal]
  - Respiratory arrest [Fatal]
  - Cardiac arrest [Fatal]
